FAERS Safety Report 7968694-1 (Version None)
Quarter: 2011Q4

REPORT INFORMATION
  Report Type: 
  Country: None (occurrence: None)
  Receive Date: 20111209
  Receipt Date: 20111207
  Transmission Date: 20120403
  Serious: Yes (Other)
  Sender: FDA-Public Use
  Company Number: GR-PFIZER INC-2011298261

PATIENT
  Age: 39 Year
  Sex: Female

DRUGS (1)
  1. CELEBREX [Suspect]
     Indication: ANTIINFLAMMATORY THERAPY
     Dosage: 200 MG, UNK
     Route: 048
     Dates: start: 20111206, end: 20111206

REACTIONS (4)
  - DISCOMFORT [None]
  - PRURITUS GENERALISED [None]
  - VOMITING [None]
  - ABDOMINAL PAIN UPPER [None]
